FAERS Safety Report 7146403-6 (Version None)
Quarter: 2010Q4

REPORT INFORMATION
  Report Type: 
  Country: None (occurrence: None)
  Receive Date: 20101208
  Receipt Date: 20100511
  Transmission Date: 20110411
  Serious: No
  Sender: FDA-Public Use
  Company Number: US-BRISTOL-MYERS SQUIBB COMPANY-15106511

PATIENT

DRUGS (3)
  1. PRAVACHOL [Suspect]
     Indication: BLOOD CHOLESTEROL
  2. LOPID [Suspect]
     Indication: BLOOD CHOLESTEROL
  3. ZOCOR [Suspect]
     Indication: BLOOD CHOLESTEROL

REACTIONS (1)
  - DRUG INEFFECTIVE [None]
